FAERS Safety Report 4848673-3 (Version None)
Quarter: 2005Q4

REPORT INFORMATION
  Report Type: 
  Country: None (occurrence: None)
  Receive Date: 20051206
  Receipt Date: 20051122
  Transmission Date: 20060501
  Serious: Yes (Other)
  Sender: FDA-Public Use
  Company Number: 2005BI021454

PATIENT
  Sex: 0

DRUGS (3)
  1. ZEVALIN [Suspect]
     Indication: B-CELL LYMPHOMA
     Dosage: 1X; IV
     Route: 042
     Dates: start: 20050501, end: 20050501
  2. ZEVALIN [Suspect]
     Indication: B-CELL LYMPHOMA
     Dosage: 1X; IV
     Route: 042
     Dates: start: 20050501, end: 20050501
  3. RITUXIMAB [Concomitant]

REACTIONS (1)
  - MESENTERIC ARTERY STENOSIS [None]
